FAERS Safety Report 7965590-0 (Version None)
Quarter: 2011Q4

REPORT INFORMATION
  Report Type: 
  Country: None (occurrence: None)
  Receive Date: 20111206
  Receipt Date: 20111206
  Transmission Date: 20120403
  Serious: Yes (Hospitalization)
  Sender: FDA-Public Use
  Company Number: None

PATIENT
  Age: 23 Year
  Sex: Male
  Weight: 87.2 kg

DRUGS (13)
  1. HYDROCORTISONE [Concomitant]
  2. URSODEOXYCHOLIC (ACTIGAL) [Concomitant]
  3. KYTRIL [Concomitant]
  4. ACYCLOVIR FLUCONAZOLE (DIFLUCAN) [Concomitant]
  5. FEN: PEPCID [Concomitant]
  6. TRILEPTAL [Concomitant]
  7. ATIVAN [Concomitant]
  8. TACROLIMUS [Concomitant]
  9. IMATINIB MESYLATE [Suspect]
     Indication: ACUTE LYMPHOCYTIC LEUKAEMIA
     Dosage: 400 MG ONCE DAILY ORAL
     Route: 048
     Dates: start: 20111015, end: 20111122
  10. IMATINIB MESYLATE [Suspect]
     Indication: CHROMOSOME ANALYSIS ABNORMAL
     Dosage: 400 MG ONCE DAILY ORAL
     Route: 048
     Dates: start: 20111015, end: 20111122
  11. BACTRIM [Concomitant]
  12. METHOTREXATE [Concomitant]
  13. GEODON [Concomitant]

REACTIONS (10)
  - INFECTION [None]
  - LETHARGY [None]
  - ORTHOSTATIC HYPOTENSION [None]
  - TREMOR [None]
  - NAUSEA [None]
  - VOMITING [None]
  - HYPONATRAEMIA [None]
  - PYREXIA [None]
  - ADRENAL INSUFFICIENCY [None]
  - GAIT DISTURBANCE [None]
